FAERS Safety Report 21979276 (Version 1)
Quarter: 2023Q1

REPORT INFORMATION
  Report Type: Spontaneous
  Country: CN (occurrence: CN)
  Receive Date: 20230210
  Receipt Date: 20230210
  Transmission Date: 20230418
  Serious: Yes (Other)
  Sender: FDA-Public Use
  Company Number: CN-SA-SAC20230208000633

PATIENT
  Age: 86 Year
  Sex: Male

DRUGS (2)
  1. CLOPIDOGREL BISULFATE [Suspect]
     Active Substance: CLOPIDOGREL BISULFATE
     Indication: Antiplatelet therapy
     Dosage: 75 MG, QD
     Route: 048
     Dates: start: 20221108, end: 20221113
  2. MILRINONE [Suspect]
     Active Substance: MILRINONE
     Indication: Cardiac disorder
     Dosage: 10 MG, QD
     Route: 042
     Dates: start: 20221111, end: 20221113

REACTIONS (3)
  - Melaena [Recovering/Resolving]
  - Haematemesis [Recovering/Resolving]
  - Occult blood positive [Recovering/Resolving]

NARRATIVE: CASE EVENT DATE: 20221112
